FAERS Safety Report 4423830-9 (Version None)
Quarter: 2004Q3

REPORT INFORMATION
  Report Type: 
  Country: None (occurrence: None)
  Receive Date: 20040715
  Receipt Date: 20030825
  Transmission Date: 20050211
  Serious: Yes (Other)
  Sender: FDA-Public Use
  Company Number: 2003171907US

PATIENT
  Age: 62 Year
  Sex: Female
  Weight: 65.8 kg

DRUGS (6)
  1. DEPO-MEDROL [Suspect]
     Indication: LIGAMENT INJURY
     Dosage: 40 MG/ML, SINGLE, INTRAMUSCULAR
     Route: 030
     Dates: start: 20030616, end: 20030616
  2. DEXAMETHASONE [Suspect]
     Indication: LIGAMENT INJURY
     Dosage: SINGLE INTRAMUSCULAR
     Route: 030
     Dates: start: 20030616, end: 20030616
  3. LOTENSIN [Concomitant]
  4. PREMARIN [Concomitant]
  5. MULTIVITAMINS (PANTHENOL, RETINOL, ERGOCALCIFEROL) [Concomitant]
  6. VITAMIN E [Concomitant]

REACTIONS (1)
  - RASH GENERALISED [None]
